FAERS Safety Report 19781285 (Version 4)
Quarter: 2021Q4

REPORT INFORMATION
  Report Type: Spontaneous
  Country: LB (occurrence: LB)
  Receive Date: 20210902
  Receipt Date: 20211109
  Transmission Date: 20220303
  Serious: Yes (Death, Disabling, Other)
  Sender: FDA-Public Use
  Company Number: LB-SA-SAC20210901000066

PATIENT
  Age: 19 Year
  Sex: Male
  Weight: 92 kg

DRUGS (5)
  1. LANTUS [Suspect]
     Active Substance: INSULIN GLARGINE
     Indication: Diabetes mellitus
     Dosage: UNK
     Route: 065
     Dates: start: 20191211
  2. APIDRA [Suspect]
     Active Substance: INSULIN GLULISINE
     Dosage: UNK
     Route: 065
     Dates: start: 20191211
  3. DEFERASIROX [Suspect]
     Active Substance: DEFERASIROX
     Indication: Thalassaemia
     Dosage: 28 MG/KG, QD
     Route: 048
     Dates: start: 20200311, end: 20201125
  4. DEFERASIROX [Suspect]
     Active Substance: DEFERASIROX
     Dosage: UNK
     Route: 048
     Dates: start: 20201126
  5. FOLIC ACID [Concomitant]
     Active Substance: FOLIC ACID
     Dosage: UNK
     Route: 065
     Dates: start: 200307

REACTIONS (8)
  - Sudden death [Fatal]
  - Loss of consciousness [Unknown]
  - Deafness neurosensory [Unknown]
  - Cardiac arrest [Unknown]
  - COVID-19 [Recovered/Resolved]
  - Snoring [Unknown]
  - Dyspnoea [Unknown]
  - Fatigue [Unknown]

NARRATIVE: CASE EVENT DATE: 20201119
